FAERS Safety Report 23328704 (Version 1)
Quarter: 2023Q4

REPORT INFORMATION
  Report Type: Spontaneous
  Country: DE (occurrence: DE)
  Receive Date: 20231221
  Receipt Date: 20231221
  Transmission Date: 20240110
  Serious: Yes (Other)
  Sender: FDA-Public Use
  Company Number: DE-DCGMA-23202301

PATIENT
  Age: 60 Year
  Sex: Female
  Weight: 58 kg

DRUGS (7)
  1. BEMPEDOIC ACID [Suspect]
     Active Substance: BEMPEDOIC ACID
     Indication: Hyperlipidaemia
     Dosage: 180 MG
     Route: 048
  2. NEBIVOLOL [Concomitant]
     Active Substance: NEBIVOLOL
     Indication: Product used for unknown indication
     Dosage: 5 MG
     Route: 048
     Dates: start: 2001
  3. REPATHA [Concomitant]
     Active Substance: EVOLOCUMAB
     Indication: Hyperlipidaemia
     Dosage: 140 MG
     Route: 058
     Dates: start: 202004
  4. REPATHA [Concomitant]
     Active Substance: EVOLOCUMAB
     Indication: Coronary artery disease
  5. VALSARTAN [Concomitant]
     Active Substance: VALSARTAN
     Indication: Product used for unknown indication
     Dosage: 160 MG
     Route: 048
     Dates: start: 2001
  6. ASPIRIN [Concomitant]
     Active Substance: ASPIRIN
     Indication: Coronary artery disease
     Dosage: 100 MG
     Route: 048
     Dates: start: 2001
  7. ASPIRIN [Concomitant]
     Active Substance: ASPIRIN
     Indication: Myocardial infarction

REACTIONS (5)
  - Intestinal metaplasia [Recovering/Resolving]
  - Abdominal distension [Recovering/Resolving]
  - Abdominal discomfort [Recovering/Resolving]
  - Constipation [Recovering/Resolving]
  - Diarrhoea [Recovering/Resolving]

NARRATIVE: CASE EVENT DATE: 20230501
